FAERS Safety Report 4736028-1 (Version None)
Quarter: 2005Q3

REPORT INFORMATION
  Report Type: 
  Country: None (occurrence: None)
  Receive Date: 20050805
  Receipt Date: 20050428
  Transmission Date: 20060218
  Serious: Yes (Disabling)
  Sender: FDA-Public Use
  Company Number: US-MERCK-0505USA00256

PATIENT
  Age: 53 Year
  Sex: Male
  Weight: 75 kg

DRUGS (3)
  1. VIOXX [Suspect]
     Indication: OSTEOARTHRITIS
     Route: 048
     Dates: start: 20000701, end: 20030101
  2. VIOXX [Suspect]
     Route: 048
     Dates: start: 20000701, end: 20030101
  3. VIOXX [Suspect]
     Route: 048
     Dates: start: 20000701, end: 20030101

REACTIONS (4)
  - BLOOD CHOLESTEROL INCREASED [None]
  - HEART RATE IRREGULAR [None]
  - HEART VALVE INSUFFICIENCY [None]
  - MYOCARDIAL INFARCTION [None]
